FAERS Safety Report 8509630-9 (Version None)
Quarter: 2012Q3

REPORT INFORMATION
  Report Type: 
  Country: None (occurrence: None)
  Receive Date: 20120713
  Receipt Date: 20120629
  Transmission Date: 20120928
  Serious: Yes (Other)
  Sender: FDA-Public Use
  Company Number: JP-PFIZER INC-2012157808

PATIENT
  Age: 69 Year
  Sex: Female

DRUGS (4)
  1. MAGLAX [Concomitant]
     Dosage: UNK
     Route: 048
  2. NESINA [Concomitant]
     Dosage: UNK
  3. AROMASIN [Concomitant]
     Dosage: UNK
  4. LIPITOR [Suspect]
     Indication: DYSLIPIDAEMIA
     Dosage: 10 MG, DAILY
     Route: 048

REACTIONS (2)
  - GAMMA-GLUTAMYLTRANSFERASE INCREASED [None]
  - BLOOD ALKALINE PHOSPHATASE INCREASED [None]
